FAERS Safety Report 8364751-9 (Version None)
Quarter: 2012Q2

REPORT INFORMATION
  Report Type: 
  Country: None (occurrence: None)
  Receive Date: 20120516
  Receipt Date: 20120504
  Transmission Date: 20120825
  Serious: Yes (Hospitalization)
  Sender: FDA-Public Use
  Company Number: US-ROCHE-1067852

PATIENT
  Age: 75 Year
  Sex: Male
  Weight: 64.86 kg

DRUGS (6)
  1. AVASTIN [Suspect]
     Indication: RECTAL CANCER
     Dosage: OVER 30-90 MINUTES Q OTHER WEEK ON DAYS 1, 15, 29 DURING RT
     Route: 042
     Dates: start: 20100317
  2. OXALIPLATIN [Suspect]
     Indication: RECTAL CANCER
     Dosage: OVER 2 HRS Q WEEK ON DAYS 1, 8, 15, 22, 29 DURING RT
     Route: 042
     Dates: start: 20100317
  3. FLUOROURACIL [Suspect]
     Dosage: 2.4GM/M2 IV CONTINUOUS INFUSION OVER 46 HRS ON DAY 1 X 12 CYCLES
     Route: 042
     Dates: start: 20100317
  4. FLUOROURACIL [Suspect]
     Indication: RECTAL CANCER
     Dosage: ON DAY 1 X 12 CYCLES
     Route: 042
     Dates: start: 20100317
  5. XELODA [Suspect]
     Indication: RECTAL CANCER
     Dosage: Q 12 HRS 5 DAYS/ WEEK STARTING ON DAY -1 TO RT
     Route: 048
     Dates: start: 20100317
  6. LEUCOVORIN CALCIUM [Suspect]
     Indication: RECTAL CANCER
     Dosage: OVER 2 HRS ON DAY 1 X 12 CYCLES
     Route: 042
     Dates: start: 20100317

REACTIONS (1)
  - CEREBRAL HAEMORRHAGE [None]
